FAERS Safety Report 12607025 (Version 1)
Quarter: 2016Q3

REPORT INFORMATION
  Report Type: Spontaneous
  Country: FR (occurrence: FR)
  Receive Date: 20160729
  Receipt Date: 20160729
  Transmission Date: 20161109
  Serious: Yes (Hospitalization, Other)
  Sender: FDA-Public Use
  Company Number: FR-PFIZER INC-3010227

PATIENT
  Age: 3 Year
  Sex: Female
  Weight: 17.1 kg

DRUGS (3)
  1. VINCRISTINE SULFATE. [Concomitant]
     Active Substance: VINCRISTINE SULFATE
     Route: 041
  2. CARBOPLATINE HOSPIRA [Suspect]
     Active Substance: CARBOPLATIN
     Indication: GLIOMA
     Dosage: 370 MG, UNK
     Route: 041
     Dates: start: 20150417, end: 20150417
  3. ZOPHREN /00955301/ [Concomitant]
     Active Substance: ONDANSETRON
     Route: 041

REACTIONS (5)
  - Rash erythematous [Recovered/Resolved]
  - Eyelid oedema [Recovered/Resolved]
  - Eye pruritus [Recovered/Resolved]
  - Cough [Recovered/Resolved]
  - Hypersensitivity [Recovered/Resolved]

NARRATIVE: CASE EVENT DATE: 20150417
